FAERS Safety Report 22146550 (Version 8)
Quarter: 2023Q2

REPORT INFORMATION
  Report Type: Spontaneous
  Country: US (occurrence: US)
  Receive Date: 20230328
  Receipt Date: 20230605
  Transmission Date: 20230721
  Serious: No
  Sender: FDA-Public Use
  Company Number: US-002147023-NVSC2023US069199

PATIENT
  Sex: Female

DRUGS (2)
  1. PATANASE [Suspect]
     Active Substance: OLOPATADINE HYDROCHLORIDE
     Indication: Product used for unknown indication
     Dosage: 665 MCG
     Route: 065
     Dates: start: 202209
  2. PATANASE [Suspect]
     Active Substance: OLOPATADINE HYDROCHLORIDE
     Dosage: 30.5 G (X2 DAILY) (ROUTE NASAL SPRAY)
     Route: 065

REACTIONS (5)
  - Illness [Unknown]
  - Hypersensitivity [Unknown]
  - Headache [Unknown]
  - Product availability issue [Unknown]
  - Intentional dose omission [Unknown]
